FAERS Safety Report 19837489 (Version 1)
Quarter: 2021Q3

REPORT INFORMATION
  Report Type: Spontaneous
  Country: US (occurrence: US)
  Receive Date: 20210916
  Receipt Date: 20210916
  Transmission Date: 20211014
  Serious: No
  Sender: FDA-Public Use
  Company Number: US-APOTEX-2020AP021713

PATIENT
  Sex: Male

DRUGS (2)
  1. TIMOLOL MALEATE OPHTHALMIC SOLUTION [Suspect]
     Active Substance: TIMOLOL MALEATE
     Dosage: 1 GTT DROPS, Q.H.S.
     Route: 047
     Dates: start: 20201020
  2. TIMOLOL MALEATE OPHTHALMIC SOLUTION [Suspect]
     Active Substance: TIMOLOL MALEATE
     Indication: PRODUCT USED FOR UNKNOWN INDICATION
     Dosage: 1 GTT DROPS, Q.AM
     Route: 047

REACTIONS (2)
  - Eye pain [Recovered/Resolved]
  - Product substitution issue [Unknown]
